FAERS Safety Report 19144677 (Version 1)
Quarter: 2021Q2

REPORT INFORMATION
  Report Type: Spontaneous
  Country: US (occurrence: US)
  Receive Date: 20210415
  Receipt Date: 20210415
  Transmission Date: 20210717
  Serious: Yes (Other)
  Sender: FDA-Public Use
  Company Number: None

PATIENT
  Age: 22 Year
  Sex: Female
  Weight: 63.8 kg

DRUGS (1)
  1. FERUMOXYTOL [Suspect]
     Active Substance: FERUMOXYTOL NON-STOICHIOMETRIC MAGNETITE
     Indication: MINERAL SUPPLEMENTATION
     Dosage: ?          OTHER FREQUENCY:ONE TIME;?
     Route: 041
     Dates: start: 20201001, end: 20201001

REACTIONS (11)
  - Blood pressure decreased [None]
  - Heart rate increased [None]
  - Tachypnoea [None]
  - Crepitations [None]
  - Pallor [None]
  - Dyspnoea [None]
  - Neck pain [None]
  - Somnolence [None]
  - Tremor [None]
  - Wheezing [None]
  - Chills [None]

NARRATIVE: CASE EVENT DATE: 20201001
